FAERS Safety Report 6172615-4 (Version None)
Quarter: 2009Q2

REPORT INFORMATION
  Report Type: 
  Country: None (occurrence: None)
  Receive Date: 20090428
  Receipt Date: 20090416
  Transmission Date: 20091009
  Serious: Yes (Other)
  Sender: FDA-Public Use
  Company Number: 239184J08USA

PATIENT
  Age: 34 Year
  Sex: Male
  Weight: 107 kg

DRUGS (12)
  1. REBIF [Suspect]
     Indication: MULTIPLE SCLEROSIS
     Dosage: 44 MCG, 3 IN 1 WEEKS, SUBCUTANEOUS
     Route: 058
     Dates: start: 20080509, end: 20080912
  2. ACYCLOVIR [Suspect]
     Indication: MULTIPLE SCLEROSIS
  3. CIPROFLOXACIN [Suspect]
     Indication: HELICOBACTER INFECTION
     Dosage: 500 MG, 2 IN 1 DAYS
  4. METHYLIN (METHYLPHENIDATE HYDROCHLORIDE) [Concomitant]
  5. ATENOLOL [Concomitant]
  6. SIMVASTATIN [Concomitant]
  7. FOLIC ACID [Concomitant]
  8. FLUOXETINE (FLUOXETINE /00724401/) [Concomitant]
  9. FAMOTIDINE [Concomitant]
  10. VITAMIN B12 [Concomitant]
  11. VITAMIN D [Concomitant]
  12. ASCORBIC ACID [Concomitant]

REACTIONS (2)
  - CONVULSION [None]
  - LOSS OF CONSCIOUSNESS [None]
